FAERS Safety Report 5754140-5 (Version None)
Quarter: 2008Q2

REPORT INFORMATION
  Report Type: 
  Country: None (occurrence: None)
  Receive Date: 20080528
  Receipt Date: 20080528
  Transmission Date: 20081010
  Serious: Yes (Life-Threatening)
  Sender: FDA-Public Use
  Company Number: None

PATIENT
  Sex: Female
  Weight: 37.7 kg

DRUGS (5)
  1. ETHAMBUTOL HYDROCHLORIDE [Suspect]
     Indication: TUBERCULOSIS
     Dosage: 1000MG TIW (M,W,F) PO
     Route: 048
     Dates: end: 20080428
  2. RIFAMPIN [Suspect]
     Indication: TUBERCULOSIS
  3. ISONIAZID [Suspect]
     Indication: TUBERCULOSIS
  4. HISTINEX (CHLORPHENIRAMINE/PSEUDOEPHEDRINE) [Concomitant]
  5. DILTIAZEM [Concomitant]

REACTIONS (1)
  - THROMBOCYTOPENIA [None]
